FAERS Safety Report 8946914 (Version 1)
Quarter: 2012Q4

REPORT INFORMATION
  Report Type: 
  Country: TR (occurrence: TR)
  Receive Date: 20121205
  Receipt Date: 20121205
  Transmission Date: 20130627
  Serious: Yes (Hospitalization)
  Sender: FDA-Public Use
  Company Number: TR-GLAXOSMITHKLINE-B0849745A

PATIENT
  Age: 23 Year
  Sex: Female

DRUGS (2)
  1. LAMICTAL [Suspect]
     Indication: BORDERLINE PERSONALITY DISORDER
     Dosage: 25MG per day
     Route: 048
     Dates: start: 20120811, end: 20120829
  2. EFEXOR [Suspect]
     Indication: ANTIDEPRESSANT THERAPY
     Dosage: 150MG per day
     Route: 048
     Dates: start: 201204, end: 20120829

REACTIONS (5)
  - Rash [Unknown]
  - Wound [Unknown]
  - Malaise [Unknown]
  - Pruritus [Unknown]
  - Rash [Unknown]
